FAERS Safety Report 8244713-2 (Version None)
Quarter: 2012Q1

REPORT INFORMATION
  Report Type: 
  Country: None (occurrence: None)
  Receive Date: 20120329
  Receipt Date: 20110304
  Transmission Date: 20120608
  Serious: No
  Sender: FDA-Public Use
  Company Number: US-MYLANLABS-2011S1003024

PATIENT
  Age: 83 Year
  Sex: Female
  Weight: 60.78 kg

DRUGS (7)
  1. ADVAIR DISKUS 100/50 [Concomitant]
     Indication: ASTHMA
     Route: 055
  2. LEVAQUIN [Concomitant]
     Indication: INFECTION
     Route: 048
     Dates: start: 20110208
  3. BENTYL [Suspect]
     Indication: ABDOMINAL PAIN
     Route: 048
     Dates: start: 20110101, end: 20110208
  4. BENTYL [Suspect]
     Route: 048
     Dates: start: 20110209
  5. FENTANYL-100 [Suspect]
     Indication: SPINAL COLUMN STENOSIS
     Dosage: QOD
     Route: 062
     Dates: start: 20110121, end: 20110205
  6. FENTANYL-100 [Suspect]
     Indication: BACK PAIN
     Dosage: QOD
     Route: 062
     Dates: start: 20110121, end: 20110205
  7. M.V.I. [Concomitant]
     Route: 048

REACTIONS (4)
  - DRUG INEFFECTIVE [None]
  - DIZZINESS [None]
  - MALAISE [None]
  - PAIN [None]
